FAERS Safety Report 16917873 (Version 1)
Quarter: 2019Q4

REPORT INFORMATION
  Report Type: Report from Study
  Country: None (occurrence: US)
  Receive Date: 20191015
  Receipt Date: 20191015
  Transmission Date: 20200122
  Serious: Yes (Other)
  Sender: FDA-Public Use
  Company Number: US-ABBVIE-19K-163-2956398-00

PATIENT
  Age: 64 Year
  Sex: Female

DRUGS (2)
  1. HUMIRA [Suspect]
     Active Substance: ADALIMUMAB
     Indication: RHEUMATOID ARTHRITIS
     Route: 058
  2. HUMIRA [Suspect]
     Active Substance: ADALIMUMAB
     Indication: ANKYLOSING SPONDYLITIS

REACTIONS (9)
  - Back pain [Unknown]
  - Nasopharyngitis [Not Recovered/Not Resolved]
  - Papilloma viral infection [Unknown]
  - Fall [Unknown]
  - Asthma [Unknown]
  - Nasopharyngitis [Recovered/Resolved]
  - Bacterial infection [Unknown]
  - Intervertebral disc disorder [Not Recovered/Not Resolved]
  - Ovarian cancer [Unknown]

NARRATIVE: CASE EVENT DATE: 20191004
